FAERS Safety Report 9181701 (Version 1)
Quarter: 2013Q1

REPORT INFORMATION
  Report Type: Spontaneous
  Country: US (occurrence: US)
  Receive Date: 20130322
  Receipt Date: 20130322
  Transmission Date: 20140127
  Serious: No
  Sender: FDA-Public Use
  Company Number: US-009507513-1303USA009378

PATIENT
  Sex: Male

DRUGS (5)
  1. ZETIA [Suspect]
     Indication: BLOOD CHOLESTEROL INCREASED
     Dosage: 10 MG, QD
     Route: 048
     Dates: start: 200604
  2. VENLAFAXINE HYDROCHLORIDE [Concomitant]
     Dosage: 5 MG, BID
  3. ATENOLOL [Concomitant]
     Dosage: 25 MG ONE HALF TABLET DAILY
     Route: 048
  4. RIVASTIGMINE [Concomitant]
     Dosage: ONE AND A HALF MG THREE TIMES DAILY
  5. POLICOSANOL [Concomitant]

REACTIONS (3)
  - Dementia [Not Recovered/Not Resolved]
  - Dementia Alzheimer^s type [Not Recovered/Not Resolved]
  - Amnesia [Not Recovered/Not Resolved]
